FAERS Safety Report 9745209 (Version 2)
Quarter: 2013Q4

REPORT INFORMATION
  Report Type: Spontaneous
  Country: US (occurrence: US)
  Receive Date: 20131211
  Receipt Date: 20131211
  Transmission Date: 20140711
  Serious: No
  Sender: FDA-Public Use
  Company Number: US-PFIZER INC-2013328236

PATIENT
  Sex: Female

DRUGS (10)
  1. XELJANZ [Suspect]
     Indication: RHEUMATOID ARTHRITIS
     Dosage: 2X/DAY
     Route: 048
     Dates: start: 20130812
  2. NORCO [Concomitant]
  3. METHOCARBAMOL [Concomitant]
  4. GABAPENTIN [Concomitant]
  5. TRIAMTERENE HYDROCHLORIDE [Concomitant]
  6. NEXIUM [Concomitant]
  7. ABILIFY [Concomitant]
  8. MACROBID [Concomitant]
  9. PENNSAID [Concomitant]
  10. CYMBALTA [Concomitant]

REACTIONS (1)
  - Oedema peripheral [Not Recovered/Not Resolved]
